FAERS Safety Report 4880776-X (Version None)
Quarter: 2006Q1

REPORT INFORMATION
  Report Type: 
  Country: None (occurrence: None)
  Receive Date: 20060111
  Receipt Date: 20041220
  Transmission Date: 20060701
  Serious: No
  Sender: FDA-Public Use
  Company Number: 2004S1000283

PATIENT
  Age: 61 Year

DRUGS (45)
  1. CUBICIN [Suspect]
     Indication: GRAM STAIN POSITIVE
     Dosage: 300 MG;Q24H; IV
     Route: 042
     Dates: start: 20041110, end: 20041220
  2. ACETAMINOPHEN [Concomitant]
  3. ACETYLCYSTEINE [Concomitant]
  4. ALBUMIN (HUMAN) [Concomitant]
  5. ALTEPLASE [Concomitant]
  6. AMPHOTERICIN B [Concomitant]
  7. CEFEPIME [Concomitant]
  8. CIPROFLOXACIN HCL [Concomitant]
  9. DIPHENHYDRAMINE [Concomitant]
  10. ENOXAPARIN SODIUM [Concomitant]
  11. ESCITALOPRAM OXALATE [Concomitant]
  12. ETOMIDATE [Concomitant]
  13. FAT EMULSION [Concomitant]
  14. FENTANYL CITRATE [Concomitant]
  15. FLUDROCORTISONE ACETATE [Concomitant]
  16. FRAGMIN [Concomitant]
  17. FUROSEMIDE [Concomitant]
  18. GANCICLOVIR [Concomitant]
  19. HEPARIN [Concomitant]
  20. HYDROCORTISONE SODIUM SUCCINATE [Concomitant]
  21. HYDROMORPHONE HCL [Concomitant]
  22. INSULIN [Concomitant]
  23. IMMUNE GLOBULIN (HUMAN) [Concomitant]
  24. LANSOPRAZOLE [Concomitant]
  25. LEVOFLOXACIN [Concomitant]
  26. LORAZEPAM [Concomitant]
  27. MAGNESIUM SULFATE [Concomitant]
  28. METHYLPREDNISOLONE [Concomitant]
  29. METRONIDAZOLE [Concomitant]
  30. NOREPINEPHRINE [Concomitant]
  31. NYSTATIN [Concomitant]
  32. ONDANSETRAN [Concomitant]
  33. POTASSIUM CHLORIDE [Concomitant]
  34. POTASSIUM PHOSPHATES [Concomitant]
  35. PROPOFOL [Concomitant]
  36. RISPERIDONE [Concomitant]
  37. ROXICET [Concomitant]
  38. SODIUM BICARBONATE [Concomitant]
  39. SODIUM CHLORIDE [Concomitant]
  40. SULFAMETHOXAZOLE + TRIMETHOPRIM [Concomitant]
  41. TACROLIMUS [Concomitant]
  42. TOTAL PARENTAL NUTRITION [Concomitant]
  43. UNASYN [Concomitant]
  44. URSODIOL [Concomitant]
  45. WARFARIN SODIUM [Concomitant]

REACTIONS (2)
  - INTERNATIONAL NORMALISED RATIO INCREASED [None]
  - LIVER FUNCTION TEST ABNORMAL [None]
